FAERS Safety Report 12743894 (Version 2)
Quarter: 2016Q4

REPORT INFORMATION
  Report Type: Spontaneous
  Country: US (occurrence: US)
  Receive Date: 20160914
  Receipt Date: 20161208
  Transmission Date: 20170207
  Serious: Yes (Hospitalization, Other)
  Sender: FDA-Public Use
  Company Number: US-DSJP-DSU-2016-130021

PATIENT

DRUGS (4)
  1. BENICAR HCT [Suspect]
     Active Substance: HYDROCHLOROTHIAZIDE\OLMESARTAN MEDOXOMIL
     Indication: HYPERTENSION
     Dosage: 40/25MG, UNK
     Dates: start: 2008, end: 2015
  2. ZANTAC [Concomitant]
     Active Substance: RANITIDINE HYDROCHLORIDE
     Indication: PRODUCT USED FOR UNKNOWN INDICATION
     Dosage: UNK
  3. TRIBENZOR [Suspect]
     Active Substance: AMLODIPINE BESYLATE\HYDROCHLOROTHIAZIDE\OLMESARTAN MEDOXOMIL
     Indication: HYPERTENSION
     Dosage: 40/10/25MG, UNK
     Dates: start: 2008, end: 2015
  4. AZOR [Suspect]
     Active Substance: AMLODIPINE BESYLATE\OLMESARTAN MEDOXOMIL
     Indication: HYPERTENSION
     Dosage: UNK
     Dates: start: 2008, end: 2015

REACTIONS (12)
  - Syncope [Unknown]
  - Hepatic steatosis [Unknown]
  - Haemorrhoids [Unknown]
  - Depression [Unknown]
  - Headache [Unknown]
  - Cerebrovascular accident [Unknown]
  - Gastrooesophageal reflux disease [Not Recovered/Not Resolved]
  - Gastritis [Not Recovered/Not Resolved]
  - Weight decreased [Unknown]
  - Gastrointestinal wall thickening [Unknown]
  - Duodenitis [Unknown]
  - Hepatic enzyme increased [Unknown]

NARRATIVE: CASE EVENT DATE: 201308
